FAERS Safety Report 10680236 (Version 1)
Quarter: 2014Q4

REPORT INFORMATION
  Report Type: Spontaneous
  Country: US (occurrence: US)
  Receive Date: 20141229
  Receipt Date: 20141229
  Transmission Date: 20150529
  Serious: No
  Sender: FDA-Public Use
  Company Number: US-SANOFI-AVENTIS-2013SA049201

PATIENT

DRUGS (2)
  1. PLAVIX [Suspect]
     Active Substance: CLOPIDOGREL BISULFATE
     Dates: start: 20091108
  2. ASPIRIN. [Suspect]
     Active Substance: ASPIRIN
     Dates: start: 20091108

REACTIONS (2)
  - Haematochezia [Unknown]
  - Gastritis [Unknown]

NARRATIVE: CASE EVENT DATE: 20100714
